FAERS Safety Report 9391297 (Version 6)
Quarter: 2013Q4

REPORT INFORMATION
  Report Type: Spontaneous
  Country: JP (occurrence: JP)
  Receive Date: 20130709
  Receipt Date: 20131029
  Transmission Date: 20140711
  Serious: Yes (Hospitalization, Other)
  Sender: FDA-Public Use
  Company Number: JP-JNJFOC-20130702013

PATIENT
  Age: 72 Year
  Sex: Female
  Weight: 45 kg

DRUGS (13)
  1. REMICADE [Suspect]
     Indication: RHEUMATOID ARTHRITIS
     Route: 042
     Dates: start: 20130129
  2. REMICADE [Suspect]
     Indication: RHEUMATOID ARTHRITIS
     Dosage: 3RD DOSE
     Route: 042
     Dates: start: 20130312, end: 20130406
  3. METHOTREXATE [Suspect]
     Indication: RHEUMATOID ARTHRITIS
     Route: 048
     Dates: start: 20120821, end: 20130405
  4. METHOTREXATE [Suspect]
     Indication: RHEUMATOID ARTHRITIS
     Route: 048
     Dates: start: 20120724, end: 20120820
  5. CELECOX [Concomitant]
     Indication: RHEUMATOID ARTHRITIS
     Route: 048
  6. FOLIAMIN [Concomitant]
     Indication: PROPHYLAXIS
     Route: 048
     Dates: end: 20130406
  7. REZALTAS [Concomitant]
     Indication: HYPERTENSION
     Route: 048
  8. URSO [Concomitant]
     Indication: LIVER DISORDER
     Route: 048
  9. PROTECADIN [Concomitant]
     Route: 048
  10. FLUITRAN [Concomitant]
     Route: 048
  11. EDIROL [Concomitant]
     Route: 048
  12. FOSAMAC [Concomitant]
     Route: 048
  13. ALENDRONATE SODIUM [Concomitant]
     Route: 048

REACTIONS (5)
  - Pneumocystis jirovecii pneumonia [Recovering/Resolving]
  - Pancytopenia [Recovered/Resolved]
  - Bone marrow disorder [Recovered/Resolved]
  - Incorrect dose administered [Unknown]
  - Liver disorder [Recovered/Resolved]
